FAERS Safety Report 9461774 (Version 1)
Quarter: 2013Q3

REPORT INFORMATION
  Report Type: Spontaneous
  Country: US (occurrence: None)
  Receive Date: 20130815
  Receipt Date: 20130815
  Transmission Date: 20140515
  Serious: Yes (Disabling, Other)
  Sender: FDA-Public Use
  Company Number: None

PATIENT
  Age: 62 Year
  Sex: Female
  Weight: 71.67 kg

DRUGS (1)
  1. HYDROCORTISONE [Suspect]
     Indication: ADDISON^S DISEASE
     Dosage: STRENGTH:  5MG?QUANTITY:  3 TABLETS IN THE AM ?1 TABLET IN THE PM ?1 DOUBLE DOSE ON SICK DAYS?FREQUENCY:  ?HOW:  BY MOUTH?
     Route: 048
     Dates: start: 20120605, end: 20130325

REACTIONS (2)
  - Abnormal loss of weight [None]
  - Retching [None]
